FAERS Safety Report 8532714-6 (Version None)
Quarter: 2012Q3

REPORT INFORMATION
  Report Type: 
  Country: None (occurrence: None)
  Receive Date: 20120724
  Receipt Date: 20120718
  Transmission Date: 20120928
  Serious: Yes (Life-Threatening, Hospitalization, Other)
  Sender: FDA-Public Use
  Company Number: PHHY2012CA060636

PATIENT
  Sex: Female

DRUGS (5)
  1. CALCIUM [Concomitant]
  2. DIURETICS [Concomitant]
  3. ANGIOTENSIN II ANTAGONISTS [Concomitant]
  4. ZOLEDRONOC ACID [Suspect]
     Indication: OSTEOPOROSIS
     Dosage: 5 MG, UNK
     Route: 042
     Dates: start: 20110601
  5. VITAMIN D [Concomitant]

REACTIONS (9)
  - URINE OUTPUT DECREASED [None]
  - FLANK PAIN [None]
  - ABDOMINAL PAIN [None]
  - GASTRIC CANCER [None]
  - HYDRONEPHROSIS [None]
  - URINE FLOW DECREASED [None]
  - RENAL DISORDER [None]
  - URETERIC OBSTRUCTION [None]
  - RECTAL CANCER RECURRENT [None]
